FAERS Safety Report 8523112-X (Version None)
Quarter: 2012Q3

REPORT INFORMATION
  Report Type: 
  Country: None (occurrence: None)
  Receive Date: 20120720
  Receipt Date: 20120716
  Transmission Date: 20120928
  Serious: No
  Sender: FDA-Public Use
  Company Number: US-PFIZER INC-2012120216

PATIENT
  Sex: Female
  Weight: 54.422 kg

DRUGS (1)
  1. SINEQUAN [Suspect]
     Indication: DEPRESSION
     Dosage: UNK

REACTIONS (2)
  - WEIGHT INCREASED [None]
  - INCREASED APPETITE [None]
